FAERS Safety Report 4625703-5 (Version None)
Quarter: 2005Q1

REPORT INFORMATION
  Report Type: 
  Country: None (occurrence: None)
  Receive Date: 20050330
  Receipt Date: 20050318
  Transmission Date: 20050727
  Serious: Yes (Life-Threatening, Other)
  Sender: FDA-Public Use
  Company Number: 2004211507JP

PATIENT
  Age: 68 Year
  Sex: Male
  Weight: 50 kg

DRUGS (3)
  1. ZYVOX [Suspect]
     Indication: ENDOCARDITIS
     Dosage: 1200 MG (600 MG, TWICE DAILY), INTRAVENOUS
     Route: 042
     Dates: start: 20040413, end: 20040426
  2. CIPROFLOXACIN HYDROCHLORIDE [Concomitant]
  3. PREDNISONE [Concomitant]

REACTIONS (1)
  - BONE MARROW DEPRESSION [None]
